FAERS Safety Report 6192805-4 (Version None)
Quarter: 2009Q2

REPORT INFORMATION
  Report Type: 
  Country: None (occurrence: None)
  Receive Date: 20090514
  Receipt Date: 20090508
  Transmission Date: 20091009
  Serious: Yes (Death, Hospitalization)
  Sender: FDA-Public Use
  Company Number: 2009US000736

PATIENT
  Age: 15 Year
  Sex: Male

DRUGS (9)
  1. AMBISOME [Suspect]
     Indication: MENINGITIS CRYPTOCOCCAL
     Dosage: 420 MG, UID/QD, IV NOS
     Route: 042
     Dates: start: 20090114, end: 20090131
  2. VANCOMYCIN [Concomitant]
  3. CEFTRIAXONE [Concomitant]
  4. NAPROXEN SODIUM [Concomitant]
  5. SUMATRIPTAN SUCCINATE [Concomitant]
  6. AZITHROMYCIN [Concomitant]
  7. FLUCYTOSINE (FLUCYTOSINE) [Concomitant]
  8. SOLU-MEDROL [Concomitant]
  9. FLUCONAZOLE [Concomitant]

REACTIONS (12)
  - APNOEIC ATTACK [None]
  - BRADYCARDIA [None]
  - BRONCHIAL SECRETION RETENTION [None]
  - CARDIO-RESPIRATORY ARREST [None]
  - HYPERHIDROSIS [None]
  - INTRACRANIAL PRESSURE INCREASED [None]
  - LUNG INFECTION PSEUDOMONAL [None]
  - NEUROLOGICAL DECOMPENSATION [None]
  - POSTURING [None]
  - TACHYCARDIA [None]
  - TACHYPNOEA [None]
  - VENTRICULAR FIBRILLATION [None]
